FAERS Safety Report 20093353 (Version 1)
Quarter: 2021Q4

REPORT INFORMATION
  Report Type: Report from Study
  Country: GB (occurrence: GB)
  Receive Date: 20211120
  Receipt Date: 20211120
  Transmission Date: 20220303
  Serious: Yes (Hospitalization, Other)
  Sender: FDA-Public Use
  Company Number: GB-NOVARTISPH-NVSC2021GB149820

PATIENT
  Sex: Female

DRUGS (1)
  1. SIPONIMOD [Suspect]
     Active Substance: SIPONIMOD
     Indication: Secondary progressive multiple sclerosis
     Dosage: UNK UNK, QD
     Route: 048
     Dates: start: 20210618

REACTIONS (5)
  - Urinary tract infection [Not Recovered/Not Resolved]
  - Multiple sclerosis [Unknown]
  - Gait inability [Unknown]
  - Musculoskeletal discomfort [Unknown]
  - Muscular weakness [Unknown]
